FAERS Safety Report 19841023 (Version 1)
Quarter: 2021Q3

REPORT INFORMATION
  Report Type: Spontaneous
  Country: US (occurrence: US)
  Receive Date: 20210916
  Receipt Date: 20210916
  Transmission Date: 20211014
  Serious: Yes (Other)
  Sender: FDA-Public Use
  Company Number: None

PATIENT
  Age: 46 Year
  Sex: Female
  Weight: 62.9 kg

DRUGS (1)
  1. IDECABTAGENE VICLEUCEL. [Suspect]
     Active Substance: IDECABTAGENE VICLEUCEL
     Indication: PLASMA CELL MYELOMA
     Dosage: ?          OTHER FREQUENCY:ONCE;?
     Route: 042
     Dates: start: 20210809, end: 20210809

REACTIONS (2)
  - Pyrexia [None]
  - Sinusitis [None]

NARRATIVE: CASE EVENT DATE: 20210810
